FAERS Safety Report 4677200-9 (Version None)
Quarter: 2005Q2

REPORT INFORMATION
  Report Type: 
  Country: None (occurrence: None)
  Receive Date: 20050531
  Receipt Date: 20050519
  Transmission Date: 20051028
  Serious: Yes (Hospitalization)
  Sender: FDA-Public Use
  Company Number: NSADSS2002021785

PATIENT
  Age: 46 Year
  Sex: Male
  Weight: 50 kg

DRUGS (7)
  1. REMICADE [Suspect]
     Route: 041
     Dates: start: 20020327
  2. REMICADE [Suspect]
     Indication: RHEUMATOID ARTHRITIS
     Route: 041
     Dates: start: 20020327
  3. TOPALGIC [Concomitant]
  4. CORTANCYL [Concomitant]
  5. CELEBREX [Concomitant]
     Route: 049
  6. METHOTREXATE [Concomitant]
     Route: 041
  7. CYNOMEL [Concomitant]

REACTIONS (14)
  - CARDIAC DISORDER [None]
  - CARDIAC MURMUR [None]
  - CONDITION AGGRAVATED [None]
  - COUGH [None]
  - DISSEMINATED TUBERCULOSIS [None]
  - IMMUNOSUPPRESSION [None]
  - LUNG INFILTRATION [None]
  - LYMPHADENOPATHY [None]
  - NAUSEA [None]
  - PLEURAL EFFUSION [None]
  - PYREXIA [None]
  - THYROID GLAND CANCER [None]
  - TUBERCULOSIS [None]
  - UPPER RESPIRATORY TRACT INFECTION [None]
